FAERS Safety Report 4440805-4 (Version None)
Quarter: 2004Q3

REPORT INFORMATION
  Report Type: 
  Country: None (occurrence: None)
  Receive Date: 20040827
  Receipt Date: 20030718
  Transmission Date: 20050211
  Serious: Yes (Hospitalization)
  Sender: FDA-Public Use
  Company Number: 2003030967

PATIENT

DRUGS (2)
  1. LOPID [Suspect]
     Indication: ILL-DEFINED DISORDER
     Dosage: ORAL
     Route: 048
  2. LISINOPRIL [Concomitant]

REACTIONS (1)
  - ANGIONEUROTIC OEDEMA [None]
